FAERS Safety Report 10029337 (Version 2)
Quarter: 2014Q1

REPORT INFORMATION
  Report Type: Spontaneous
  Country: IE (occurrence: IE)
  Receive Date: 20140321
  Receipt Date: 20140321
  Transmission Date: 20141002
  Serious: Yes (Hospitalization)
  Sender: FDA-Public Use
  Company Number: US-ASTRAZENECA-2014SE13430

PATIENT
  Age: 234 Day
  Sex: Male

DRUGS (12)
  1. SYNAGIS [Suspect]
     Indication: CRI DU CHAT SYNDROME
     Route: 030
     Dates: start: 20131119
  2. SYNAGIS [Suspect]
     Indication: CRI DU CHAT SYNDROME
     Route: 030
     Dates: start: 20140204
  3. SYNAGIS [Suspect]
     Indication: CRI DU CHAT SYNDROME
     Route: 030
     Dates: start: 20140310
  4. FRUSEMIDE [Concomitant]
     Indication: PRODUCT USED FOR UNKNOWN INDICATION
     Route: 065
  5. SPIRONOLACTONE [Concomitant]
     Indication: PRODUCT USED FOR UNKNOWN INDICATION
     Route: 065
  6. GALFER [Concomitant]
     Indication: PRODUCT USED FOR UNKNOWN INDICATION
     Route: 065
  7. OROMORPH [Concomitant]
     Indication: PRODUCT USED FOR UNKNOWN INDICATION
     Route: 065
  8. ZOTON [Concomitant]
     Indication: PRODUCT USED FOR UNKNOWN INDICATION
     Route: 065
  9. ATROVENT [Concomitant]
     Indication: PRODUCT USED FOR UNKNOWN INDICATION
     Route: 065
  10. SALBUTAMOL [Concomitant]
     Indication: PRODUCT USED FOR UNKNOWN INDICATION
     Route: 065
  11. VITAMIN D [Concomitant]
     Indication: PRODUCT USED FOR UNKNOWN INDICATION
     Route: 065
  12. HYOSIN [Concomitant]
     Indication: PRODUCT USED FOR UNKNOWN INDICATION
     Route: 065

REACTIONS (9)
  - H1N1 influenza [Recovering/Resolving]
  - Gastrointestinal infection [Recovering/Resolving]
  - Cough [Recovering/Resolving]
  - Dyspnoea [Recovering/Resolving]
  - Increased bronchial secretion [Recovering/Resolving]
  - Nasopharyngitis [Recovering/Resolving]
  - Respiratory tract congestion [Recovering/Resolving]
  - Pyrexia [Recovering/Resolving]
  - Wheezing [Recovering/Resolving]
